FAERS Safety Report 10668215 (Version 1)
Quarter: 2014Q4

REPORT INFORMATION
  Report Type: Spontaneous
  Country: US (occurrence: US)
  Receive Date: 20141222
  Receipt Date: 20141222
  Transmission Date: 20150529
  Serious: No
  Sender: FDA-Public Use
  Company Number: US-GLAXOSMITHKLINE-A1072230A

PATIENT

DRUGS (1)
  1. AVODART [Suspect]
     Active Substance: DUTASTERIDE
     Indication: METABOLIC DISORDER
     Route: 048
     Dates: start: 2005

REACTIONS (2)
  - Cardiac disorder [Unknown]
  - Cardiac assistance device user [Unknown]
